FAERS Safety Report 6418765-6 (Version None)
Quarter: 2009Q4

REPORT INFORMATION
  Report Type: 
  Country: None (occurrence: None)
  Receive Date: 20091028
  Receipt Date: 20091014
  Transmission Date: 20100525
  Serious: No
  Sender: FDA-Public Use
  Company Number: US-ALLERGAN-0914263US

PATIENT
  Age: 75 Year
  Sex: Female

DRUGS (5)
  1. ACUVAIL [Suspect]
     Indication: DRUG USE FOR UNKNOWN INDICATION
     Dosage: UNK
     Route: 047
     Dates: start: 20091013
  2. AVAPRO [Concomitant]
  3. CARVEDILOL [Concomitant]
  4. POTASSIUM CHLORIDE [Concomitant]
  5. ROPINIROLE [Concomitant]

REACTIONS (1)
  - ABDOMINAL DISCOMFORT [None]
